FAERS Safety Report 17240985 (Version 2)
Quarter: 2021Q1

REPORT INFORMATION
  Report Type: Other
  Country: US (occurrence: US)
  Receive Date: 20200107
  Receipt Date: 20210202
  Transmission Date: 20210419
  Serious: Yes (Hospitalization)
  Sender: FDA-Public Use
  Company Number: US-ROCHE-2503059

PATIENT
  Age: 23 Year
  Sex: Female
  Weight: 99.88 kg

DRUGS (6)
  1. OCREVUS [Suspect]
     Active Substance: OCRELIZUMAB
     Indication: RELAPSING MULTIPLE SCLEROSIS
     Route: 042
  2. HYDROXYCHLOROQUINE [Concomitant]
     Active Substance: HYDROXYCHLOROQUINE
     Indication: INFLAMMATION
     Route: 048
     Dates: start: 201908
  3. OCREVUS [Suspect]
     Active Substance: OCRELIZUMAB
     Indication: MULTIPLE SCLEROSIS
     Dosage: DATE OF TREATMENT: 06/APR/2018, 12/OCT/2018,12/APR/2019, 09/JUL/2020, 06/JAN/2020,
     Route: 042
     Dates: start: 2017
  4. DICLOFENAC [Concomitant]
     Active Substance: DICLOFENAC
     Indication: ARTHRALGIA
     Route: 048
     Dates: start: 2000
  5. SYNTHROID [Concomitant]
     Active Substance: LEVOTHYROXINE SODIUM
     Indication: RHEUMATOID ARTHRITIS
     Route: 048
     Dates: start: 2000
  6. METFORMIN [Concomitant]
     Active Substance: METFORMIN HYDROCHLORIDE
     Indication: POLYCYSTIC OVARIES
     Route: 048
     Dates: start: 2002

REACTIONS (7)
  - Thyroid hormones increased [Recovered/Resolved]
  - Anxiety [Unknown]
  - Dysphemia [Recovered/Resolved]
  - Relapsing multiple sclerosis [Recovered/Resolved]
  - Seizure [Recovered/Resolved]
  - Migraine [Unknown]
  - Dizziness [Recovered/Resolved]

NARRATIVE: CASE EVENT DATE: 2018
